FAERS Safety Report 5714455-3 (Version None)
Quarter: 2008Q2

REPORT INFORMATION
  Report Type: 
  Country: None (occurrence: None)
  Receive Date: 20080423
  Receipt Date: 20080411
  Transmission Date: 20081010
  Serious: Yes (Other)
  Sender: FDA-Public Use
  Company Number: US-AVENTIS-200718398US

PATIENT
  Sex: Male

DRUGS (10)
  1. KETEK [Suspect]
     Indication: SINUSITIS
     Dates: start: 20060608
  2. KETEK [Suspect]
     Dates: start: 20060608
  3. DEPAKOTE [Suspect]
  4. LEXAPRO [Concomitant]
     Indication: DEPRESSION
  5. ERYTHROMYCIN GEL [Concomitant]
     Indication: ACNE
     Dosage: DOSE: UNK
  6. FLONASE [Concomitant]
     Dosage: DOSE: UNK
  7. ZYPREXA [Concomitant]
     Indication: DEPRESSION
  8. ALPRAZOLAM [Concomitant]
  9. ZYRTEC [Concomitant]
  10. HYOSCYAMINE [Concomitant]
     Dosage: DOSE: UNK

REACTIONS (2)
  - HEPATIC ENZYME INCREASED [None]
  - INJURY [None]
